FAERS Safety Report 4747900-0 (Version None)
Quarter: 2005Q3

REPORT INFORMATION
  Report Type: 
  Country: None (occurrence: None)
  Receive Date: 20050817
  Receipt Date: 20050817
  Transmission Date: 20060218
  Serious: Yes (Hospitalization)
  Sender: FDA-Public Use
  Company Number: None

PATIENT
  Age: 47 Year
  Sex: Female
  Weight: 58.9676 kg

DRUGS (2)
  1. MAXALT-MLT [Suspect]
     Indication: MIGRAINE
     Dosage: 1 TO 4 TABLETS PRN FOR MIGRAINE SUBLINGUAL
     Route: 060
     Dates: start: 20041201, end: 20050408
  2. NORTRIPTYLINE HCL [Concomitant]

REACTIONS (1)
  - MYOCARDIAL INFARCTION [None]
